FAERS Safety Report 11337164 (Version 1)
Quarter: 2015Q3

REPORT INFORMATION
  Report Type: Spontaneous
  Country: CN (occurrence: CN)
  Receive Date: 20150804
  Receipt Date: 20150804
  Transmission Date: 20151125
  Serious: Yes (Hospitalization, Other)
  Sender: FDA-Public Use
  Company Number: CN-GILEAD-2015-0161521

PATIENT
  Age: 57 Year
  Sex: Male

DRUGS (1)
  1. HEPSERA [Suspect]
     Active Substance: ADEFOVIR DIPIVOXIL
     Indication: HEPATIC CIRRHOSIS
     Dosage: 10 MG, QD
     Route: 065

REACTIONS (5)
  - Fanconi syndrome acquired [Not Recovered/Not Resolved]
  - Osteomalacia [Recovered/Resolved]
  - Femoral neck fracture [Recovering/Resolving]
  - Osteonecrosis [Unknown]
  - Hypophosphataemia [Recovered/Resolved]
